FAERS Safety Report 17830031 (Version 2)
Quarter: 2020Q2

REPORT INFORMATION
  Report Type: Report from Study
  Country: None (occurrence: BE)
  Receive Date: 20200527
  Receipt Date: 20200529
  Transmission Date: 20200714
  Serious: Yes (Hospitalization, Other)
  Sender: FDA-Public Use
  Company Number: BE-ABBVIE-20K-013-3419356-00

PATIENT
  Sex: Male

DRUGS (3)
  1. DUODOPA [Suspect]
     Active Substance: CARBIDOPA\LEVODOPA
     Indication: PARKINSON^S DISEASE
     Dosage: UNKNOWN DOSAGES
     Route: 050
     Dates: start: 20150420, end: 20171123
  2. DUODOPA [Suspect]
     Active Substance: CARBIDOPA\LEVODOPA
     Dosage: MD=5ML, CD=2.9ML/HR DURING 16HRS, ED=2ML
     Route: 050
     Dates: start: 20200526
  3. DUODOPA [Suspect]
     Active Substance: CARBIDOPA\LEVODOPA
     Dosage: MD=5ML, CD=2.9ML/HR DURING 16HRS, ED=2ML
     Route: 050
     Dates: start: 20171123, end: 20200522

REACTIONS (2)
  - Device dislocation [Recovered/Resolved]
  - Cardiac disorder [Unknown]

NARRATIVE: CASE EVENT DATE: 20200522
